FAERS Safety Report 6860181-7 (Version None)
Quarter: 2010Q3

REPORT INFORMATION
  Report Type: 
  Country: None (occurrence: None)
  Receive Date: 20100719
  Receipt Date: 20100719
  Transmission Date: 20110219
  Serious: Yes (Hospitalization)
  Sender: FDA-Public Use
  Company Number: None

PATIENT
  Age: 64 Year
  Sex: Male
  Weight: 77 kg

DRUGS (2)
  1. TRIHEXYPHENIDYL HCL [Suspect]
     Dosage: 1 MG TID PO
     Route: 048
     Dates: start: 20100428, end: 20100519
  2. PRIMIDONE [Suspect]
     Dosage: 175 MG EVERY DAY PO
     Route: 048
     Dates: start: 20090508, end: 20100519

REACTIONS (3)
  - CONFUSIONAL STATE [None]
  - FALL [None]
  - GAIT DISTURBANCE [None]
